FAERS Safety Report 24751391 (Version 1)
Quarter: 2024Q4

REPORT INFORMATION
  Report Type: Spontaneous
  Country: US (occurrence: US)
  Receive Date: 20241219
  Receipt Date: 20241219
  Transmission Date: 20250115
  Serious: No
  Sender: SANOFI AVENTIS
  Company Number: US-SA-2024SA372561

PATIENT
  Age: 71 Year
  Sex: Female
  Weight: 69.58 kg

DRUGS (13)
  1. DUPIXENT [Suspect]
     Active Substance: DUPILUMAB
     Indication: Dermatitis atopic
     Dosage: 300 MG, QOW
     Route: 058
     Dates: start: 20241114
  2. TRIAMCINOLONE [Concomitant]
     Active Substance: TRIAMCINOLONE
  3. NURTEC ODT [Concomitant]
     Active Substance: RIMEGEPANT SULFATE
  4. MUPIROCIN [Concomitant]
     Active Substance: MUPIROCIN
  5. TOPIRAMATE [Concomitant]
     Active Substance: TOPIRAMATE
  6. METOPROLOL [Concomitant]
     Active Substance: METOPROLOL
  7. ROSUVASTATIN [Concomitant]
     Active Substance: ROSUVASTATIN
  8. SYNTHROID [Concomitant]
     Active Substance: LEVOTHYROXINE SODIUM
  9. GABAPENTIN [Concomitant]
     Active Substance: GABAPENTIN
  10. ELIQUIS [Concomitant]
     Active Substance: APIXABAN
  11. OLMESARTAN [Concomitant]
     Active Substance: OLMESARTAN
  12. VISTARIL [Concomitant]
     Active Substance: HYDROXYZINE PAMOATE
  13. CELEBREX [Concomitant]
     Active Substance: CELECOXIB

REACTIONS (2)
  - Nausea [Unknown]
  - Diarrhoea [Unknown]

NARRATIVE: CASE EVENT DATE: 20241211
